FAERS Safety Report 15154873 (Version 2)
Quarter: 2018Q3

REPORT INFORMATION
  Report Type: Report from Study
  Country: US (occurrence: US)
  Receive Date: 20180717
  Receipt Date: 20180719
  Transmission Date: 20181010
  Serious: Yes (Hospitalization, Other)
  Sender: FDA-Public Use
  Company Number: US-GILEAD-2018-0350317

PATIENT
  Age: 32 Year
  Sex: Male

DRUGS (7)
  1. TOBRAMYCIN. [Concomitant]
     Active Substance: TOBRAMYCIN
  2. AZTREONAM LYSINE [Suspect]
     Active Substance: AZTREONAM LYSINE
     Indication: CYSTIC FIBROSIS
     Dosage: 75 MG, TID
     Route: 055
     Dates: start: 20130910
  3. URSODIOL. [Concomitant]
     Active Substance: URSODIOL
  4. TEZACAFTOR [Concomitant]
     Active Substance: TEZACAFTOR
  5. RANITIDINE. [Concomitant]
     Active Substance: RANITIDINE
  6. PULMOZYME [Concomitant]
     Active Substance: DORNASE ALFA
  7. IVACAFTOR [Concomitant]
     Active Substance: IVACAFTOR

REACTIONS (1)
  - Pulmonary thrombosis [Recovering/Resolving]

NARRATIVE: CASE EVENT DATE: 20180702
